FAERS Safety Report 9854577 (Version 6)
Quarter: 2015Q1

REPORT INFORMATION
  Report Type: Report from Study
  Country: US (occurrence: US)
  Receive Date: 20140130
  Receipt Date: 20150325
  Transmission Date: 20150721
  Serious: Yes (Hospitalization, Other)
  Sender: FDA-Public Use
  Company Number: US-BIOGENIDEC-2014BI007710

PATIENT
  Age: 60 Year
  Sex: Female
  Weight: 71 kg

DRUGS (10)
  1. AMPYRA [Concomitant]
     Active Substance: DALFAMPRIDINE
     Indication: MULTIPLE SCLEROSIS
     Route: 048
     Dates: start: 201111
  2. VITAMIN D [Concomitant]
     Active Substance: CHOLECALCIFEROL
     Route: 048
  3. SENEKOT [Concomitant]
     Route: 048
  4. BACLOFEN. [Concomitant]
     Active Substance: BACLOFEN
  5. BOTOX [Concomitant]
     Active Substance: ONABOTULINUMTOXINA
  6. TECFIDERA [Suspect]
     Active Substance: DIMETHYL FUMARATE
     Indication: MULTIPLE SCLEROSIS
     Route: 048
     Dates: start: 20130708
  7. TYSABRI [Concomitant]
     Active Substance: NATALIZUMAB
  8. VESICARE [Concomitant]
     Active Substance: SOLIFENACIN SUCCINATE
  9. AVONEX [Concomitant]
     Active Substance: INTERFERON BETA-1A
     Indication: MULTIPLE SCLEROSIS
     Route: 030
  10. TYLENOL [Concomitant]
     Active Substance: ACETAMINOPHEN

REACTIONS (27)
  - Neurogenic bladder [Recovered/Resolved]
  - Pain [Unknown]
  - Gastroenteritis viral [Recovered/Resolved]
  - Abdominal pain [Unknown]
  - Back pain [Unknown]
  - Klebsiella test positive [Recovered/Resolved]
  - Flatulence [Unknown]
  - Tremor [Unknown]
  - Dizziness [Unknown]
  - Urinary tract infection [Recovered/Resolved]
  - Troponin increased [Recovered/Resolved]
  - Chest pain [Unknown]
  - Vulvovaginal burning sensation [Unknown]
  - Bladder spasm [Unknown]
  - Constipation [Unknown]
  - Abdominal discomfort [Unknown]
  - Cholelithiasis [Unknown]
  - Peritoneal cyst [Unknown]
  - Pollakiuria [Not Recovered/Not Resolved]
  - Fall [Recovered/Resolved]
  - Vulvovaginal discomfort [Unknown]
  - Muscle spasms [Unknown]
  - Insomnia [Unknown]
  - Catheter placement [Unknown]
  - Micturition urgency [Not Recovered/Not Resolved]
  - Peripheral swelling [Unknown]
  - Abdominal pain upper [Unknown]

NARRATIVE: CASE EVENT DATE: 20131220
